FAERS Safety Report 7204396-7 (Version None)
Quarter: 2010Q4

REPORT INFORMATION
  Report Type: 
  Country: None (occurrence: None)
  Receive Date: 20101230
  Receipt Date: 20101221
  Transmission Date: 20110411
  Serious: Yes (Hospitalization)
  Sender: FDA-Public Use
  Company Number: US-ASTRAZENECA-2010SE46168

PATIENT
  Age: 16 Year
  Sex: Male
  Weight: 104.8 kg

DRUGS (2)
  1. SYMBICORT [Suspect]
     Indication: ASTHMA
     Dosage: 160/4.5, 2 PUFFS BID
     Route: 055
     Dates: start: 20090903
  2. PROVENTIL [Concomitant]

REACTIONS (2)
  - CHEST PAIN [None]
  - WRONG DRUG ADMINISTERED [None]
